FAERS Safety Report 7540449-1 (Version None)
Quarter: 2011Q2

REPORT INFORMATION
  Report Type: 
  Country: None (occurrence: None)
  Receive Date: 20110610
  Receipt Date: 20110530
  Transmission Date: 20111010
  Serious: Yes (Death)
  Sender: FDA-Public Use
  Company Number: AR-GENZYME-CLOF-1001631

PATIENT
  Sex: Female

DRUGS (2)
  1. CLOLAR [Suspect]
     Dosage: UNK
     Route: 065
     Dates: start: 20110417, end: 20110418
  2. CLOLAR [Suspect]
     Indication: ACUTE LYMPHOCYTIC LEUKAEMIA
     Dosage: UNK
     Route: 065
     Dates: start: 20110414, end: 20110416

REACTIONS (1)
  - PANCYTOPENIA [None]
